FAERS Safety Report 25686016 (Version 1)
Quarter: 2025Q3

REPORT INFORMATION
  Report Type: Spontaneous
  Country: EU (occurrence: EU)
  Receive Date: 20250815
  Receipt Date: 20250815
  Transmission Date: 20251020
  Serious: Yes (Other)
  Sender: ORGANON
  Company Number: None

PATIENT
  Age: 17 Year
  Sex: Female
  Weight: 45 kg

DRUGS (2)
  1. SINGULAIR [Suspect]
     Active Substance: MONTELUKAST SODIUM
     Dosage: (DF) EQUAL TO CARD
     Route: 048
     Dates: start: 20241022, end: 20241022
  2. IBUPROFEN [Suspect]
     Active Substance: IBUPROFEN
     Dosage: (DF) EQUAL TO CARD
     Route: 048
     Dates: start: 20241022, end: 20241022

REACTIONS (3)
  - Suicide attempt [Unknown]
  - Intentional overdose [Unknown]
  - No adverse event [Unknown]

NARRATIVE: CASE EVENT DATE: 20241022
